FAERS Safety Report 7865403-1 (Version None)
Quarter: 2011Q4

REPORT INFORMATION
  Report Type: 
  Country: None (occurrence: None)
  Receive Date: 20111028
  Receipt Date: 20101215
  Transmission Date: 20120403
  Serious: No
  Sender: FDA-Public Use
  Company Number: US-GLAXOSMITHKLINE-A0899927A

PATIENT
  Age: 25 Year
  Sex: Female

DRUGS (3)
  1. ADVAIR DISKUS 100/50 [Suspect]
     Indication: CHEST DISCOMFORT
     Dosage: 1PUFF SINGLE DOSE
     Route: 055
     Dates: start: 20101214, end: 20101214
  2. ALBUTEROL [Concomitant]
  3. UNKNOWN MEDICATION [Concomitant]

REACTIONS (7)
  - LOCAL SWELLING [None]
  - DYSPHAGIA [None]
  - HYPERSENSITIVITY [None]
  - LYMPHADENOPATHY [None]
  - MUSCLE TIGHTNESS [None]
  - THROAT TIGHTNESS [None]
  - DYSPNOEA [None]
